FAERS Safety Report 8232035-5 (Version None)
Quarter: 2012Q1

REPORT INFORMATION
  Report Type: 
  Country: None (occurrence: None)
  Receive Date: 20120321
  Receipt Date: 20120308
  Transmission Date: 20120608
  Serious: Yes (Hospitalization)
  Sender: FDA-Public Use
  Company Number: FK201200732

PATIENT
  Age: 68 Year
  Sex: Female

DRUGS (1)
  1. CEFTRIAXON [Suspect]
     Indication: CHRONIC OBSTRUCTIVE PULMONARY DISEASE
     Dosage: INTRAMUSCULAR
     Route: 030
     Dates: start: 20120116, end: 20120116

REACTIONS (1)
  - ANAPHYLACTIC SHOCK [None]
